FAERS Safety Report 6790062 (Version 2)
Quarter: 2020Q3

REPORT INFORMATION
  Report Type: Report from Study
  Country: JP (occurrence: JP)
  Receive Date: 20081017
  Receipt Date: 20081028
  Transmission Date: 20201105
  Serious: Yes (Death, Life-Threatening)
  Sender: FDA-Public Use
  Company Number: JP-JNJFOC-20070306970

PATIENT
  Age: 65 Year
  Sex: Female

DRUGS (13)
  1. NOVOLIN R [Concomitant]
     Active Substance: INSULIN HUMAN
     Route: 065
  2. CLINDAMYCIN. [Concomitant]
     Active Substance: CLINDAMYCIN
     Indication: SEPSIS
     Route: 065
  3. ELASPOL [Concomitant]
     Route: 065
  4. NONTHRON [Concomitant]
     Route: 065
  5. MINOCYCLINE HYDROCHLORIDE. [Concomitant]
     Active Substance: MINOCYCLINE HYDROCHLORIDE
     Indication: SEPSIS
     Route: 065
  6. VENOGLOBULIN [Concomitant]
     Active Substance: HUMAN IMMUNOGLOBULIN G
     Indication: SEPSIS
     Route: 065
  7. ZANTAC [Concomitant]
     Active Substance: RANITIDINE HYDROCHLORIDE
     Route: 065
  8. MINOFIT [Concomitant]
     Indication: LIVER DISORDER
     Route: 065
  9. FINIBAX [Suspect]
     Active Substance: DORIPENEM MONOHYDRATE
     Route: 041
  10. SOLU?CORTEF [Concomitant]
     Active Substance: HYDROCORTISONE SODIUM SUCCINATE
     Route: 065
  11. AMPICILLIN [Concomitant]
     Active Substance: AMPICILLIN
     Indication: SEPSIS
     Route: 065
  12. FINIBAX [Suspect]
     Active Substance: DORIPENEM MONOHYDRATE
     Indication: SEPSIS
     Route: 041
  13. FUTHAN [Concomitant]
     Route: 065

REACTIONS (5)
  - Platelet count decreased [Not Recovered/Not Resolved]
  - Necrotising fasciitis [Fatal]
  - Liver disorder [Not Recovered/Not Resolved]
  - Renal impairment [Not Recovered/Not Resolved]
  - Sepsis [Fatal]

NARRATIVE: CASE EVENT DATE: 20061229
